FAERS Safety Report 8838066 (Version 1)
Quarter: 2012Q4

REPORT INFORMATION
  Report Type: Report from Study
  Country: US (occurrence: US)
  Receive Date: 20121012
  Receipt Date: 20121012
  Transmission Date: 20130627
  Serious: Yes (Death)
  Sender: FDA-Public Use
  Company Number: US-ROCHE-1144624

PATIENT
  Age: 46 Year
  Sex: Female

DRUGS (1)
  1. XELODA [Suspect]
     Indication: BREAST CANCER METASTATIC
     Dosage: therapy stopped on 15/May/2011
     Route: 048
     Dates: start: 20110315

REACTIONS (1)
  - Metastases to central nervous system [Fatal]
